FAERS Safety Report 14999728 (Version 1)
Quarter: 2018Q2

REPORT INFORMATION
  Report Type: Spontaneous
  Country: US (occurrence: US)
  Receive Date: 20180523
  Receipt Date: 20180523
  Transmission Date: 20180711
  Serious: Yes (Life-Threatening, Hospitalization, Disabling)
  Sender: FDA-Public Use
  Company Number: None

PATIENT
  Age: 12 Year
  Sex: Male
  Weight: 29.25 kg

DRUGS (2)
  1. MONTELUKAST [Suspect]
     Active Substance: MONTELUKAST SODIUM
     Indication: SEASONAL ALLERGY
     Route: 048
     Dates: start: 20160701, end: 20160728
  2. MONTELUKAST [Suspect]
     Active Substance: MONTELUKAST SODIUM
     Indication: ASTHMA
     Route: 048
     Dates: start: 20160701, end: 20160728

REACTIONS (6)
  - Suicidal ideation [None]
  - Obsessive-compulsive disorder [None]
  - Intrusive thoughts [None]
  - Depression [None]
  - Weight decreased [None]
  - Nightmare [None]

NARRATIVE: CASE EVENT DATE: 20160728
